FAERS Safety Report 7590885-2 (Version None)
Quarter: 2011Q3

REPORT INFORMATION
  Report Type: 
  Country: None (occurrence: None)
  Receive Date: 20110705
  Receipt Date: 20110623
  Transmission Date: 20111222
  Serious: Yes (Other)
  Sender: FDA-Public Use
  Company Number: PHHY2011JP56535

PATIENT
  Age: 48 Year
  Sex: Male

DRUGS (2)
  1. AMLODIPINE [Concomitant]
     Route: 048
     Dates: start: 20110507
  2. DIOVAN HCT [Suspect]
     Indication: HYPERTENSION
     Dosage: 1 DF, DAILY
     Route: 048
     Dates: start: 20110408, end: 20110622

REACTIONS (5)
  - DIZZINESS [None]
  - DYSSTASIA [None]
  - FALL [None]
  - ORTHOSTATIC HYPOTENSION [None]
  - MALAISE [None]
